FAERS Safety Report 15249073 (Version 1)
Quarter: 2018Q3

REPORT INFORMATION
  Report Type: Spontaneous
  Country: IN (occurrence: IN)
  Receive Date: 20180807
  Receipt Date: 20180807
  Transmission Date: 20181010
  Serious: Yes (Hospitalization, Other)
  Sender: FDA-Public Use
  Company Number: IN-ASTELLAS-2018US034563

PATIENT
  Age: 34 Year
  Sex: Male

DRUGS (1)
  1. TACROLIMUS. [Suspect]
     Active Substance: TACROLIMUS
     Indication: RENAL TRANSPLANT
     Dosage: UNK UNK, UNKNOWN FREQ.
     Route: 065

REACTIONS (7)
  - Sepsis [Recovered/Resolved]
  - Escherichia infection [Recovered/Resolved]
  - Diabetes mellitus [Unknown]
  - Haemoglobin decreased [Unknown]
  - Decreased appetite [Unknown]
  - Emphysematous pyelonephritis [Recovered/Resolved]
  - Complications of transplanted kidney [Recovered/Resolved]
